FAERS Safety Report 7875316-7 (Version None)
Quarter: 2011Q4

REPORT INFORMATION
  Report Type: 
  Country: None (occurrence: None)
  Receive Date: 20111031
  Receipt Date: 20111018
  Transmission Date: 20120403
  Serious: Yes (Other)
  Sender: FDA-Public Use
  Company Number: PHHY2011BR89116

PATIENT
  Sex: Female

DRUGS (3)
  1. FORMOTEROL FUMARATE [Suspect]
     Indication: DYSPNOEA
  2. FORMOTEROL FUMARATE [Suspect]
     Indication: BRONCHOSPASM
  3. FORMOTEROL FUMARATE [Suspect]
     Indication: ASTHMA

REACTIONS (6)
  - OROPHARYNGEAL PAIN [None]
  - ASTHMA [None]
  - SINUSITIS [None]
  - DEVICE MALFUNCTION [None]
  - WRONG TECHNIQUE IN DRUG USAGE PROCESS [None]
  - DYSPNOEA [None]
